FAERS Safety Report 4362533-6 (Version None)
Quarter: 2004Q2

REPORT INFORMATION
  Report Type: 
  Country: None (occurrence: None)
  Receive Date: 20040517
  Receipt Date: 20040329
  Transmission Date: 20050107
  Serious: Yes (Other)
  Sender: FDA-Public Use
  Company Number: S04-USA-01853-02

PATIENT
  Age: 75 Year
  Sex: Male
  Weight: 68.4932 kg

DRUGS (8)
  1. NAMENDA [Suspect]
     Indication: DEMENTIA ALZHEIMER'S TYPE
     Dosage: 10 MG QD PO
     Route: 048
     Dates: start: 20040101, end: 20040101
  2. NAMENDA [Suspect]
     Indication: DEMENTIA ALZHEIMER'S TYPE
     Dosage: 10 MG BID PO
     Route: 048
     Dates: start: 20040101, end: 20040316
  3. NAMENDA [Suspect]
     Indication: DEMENTIA ALZHEIMER'S TYPE
     Dosage: 5 MG QD PO
     Route: 048
     Dates: start: 20040128, end: 20040101
  4. NAMENDA [Suspect]
     Indication: DEMENTIA ALZHEIMER'S TYPE
     Dosage: 15 MG QD PO
     Route: 048
     Dates: start: 20040101, end: 20040101
  5. TRAZODONE HCL [Suspect]
     Indication: AGITATION
     Dosage: 150 MG QHS
     Dates: end: 20040316
  6. DEPAKOTE [Suspect]
     Indication: AGITATION
     Dosage: 250 MG BID
     Dates: end: 20040316
  7. LORAZEPAM [Suspect]
     Indication: ANXIETY
     Dosage: 0.5 MG BID
     Dates: end: 20040316
  8. ARICEPT [Concomitant]

REACTIONS (2)
  - APRAXIA [None]
  - CONFUSIONAL STATE [None]
